FAERS Safety Report 9727541 (Version 2)
Quarter: 2013Q4

REPORT INFORMATION
  Report Type: Spontaneous
  Country: US (occurrence: US)
  Receive Date: 20131203
  Receipt Date: 20131203
  Transmission Date: 20140711
  Serious: Yes (Other)
  Sender: FDA-Public Use
  Company Number: US-GILEAD-2013-0086859

PATIENT
  Age: 71 Year
  Sex: Male

DRUGS (10)
  1. LETAIRIS [Suspect]
     Indication: PULMONARY ARTERIAL HYPERTENSION
     Dosage: 10 MG, QD
     Route: 048
     Dates: start: 20110401
  2. REMODULIN [Concomitant]
  3. BENAZEPRIL [Concomitant]
  4. DIGOXIN [Concomitant]
  5. PRADAXA [Concomitant]
  6. SPIRONOLACTONE [Concomitant]
  7. TOPROL [Concomitant]
  8. TORSEMIDE [Concomitant]
  9. ZOCOR [Concomitant]
  10. VENTOLIN                           /00139501/ [Concomitant]

REACTIONS (3)
  - Renal failure [Not Recovered/Not Resolved]
  - Blood urea increased [Unknown]
  - Blood creatinine increased [None]
